FAERS Safety Report 19824724 (Version 1)
Quarter: 2021Q3

REPORT INFORMATION
  Report Type: Spontaneous
  Country: US (occurrence: US)
  Receive Date: 20210913
  Receipt Date: 20210913
  Transmission Date: 20211014
  Serious: Yes (Other)
  Sender: FDA-Public Use
  Company Number: None

PATIENT
  Age: 35 Year
  Sex: Male
  Weight: 106.65 kg

DRUGS (5)
  1. TORSEMIDE. [Concomitant]
     Active Substance: TORSEMIDE
     Dates: start: 20210820
  2. SPIRONOLACTONE. [Concomitant]
     Active Substance: SPIRONOLACTONE
     Dates: start: 20210820
  3. ENTRESTO [Concomitant]
     Active Substance: SACUBITRIL\VALSARTAN
     Dates: start: 20210820
  4. ENTRESTO [Suspect]
     Active Substance: SACUBITRIL\VALSARTAN
     Indication: CARDIAC FAILURE
     Route: 048
     Dates: start: 20210901, end: 20210913
  5. CARVEDILOL. [Concomitant]
     Active Substance: CARVEDILOL
     Dates: start: 20210820

REACTIONS (1)
  - Painful ejaculation [None]

NARRATIVE: CASE EVENT DATE: 20210903
